FAERS Safety Report 6122444-2 (Version None)
Quarter: 2009Q1

REPORT INFORMATION
  Report Type: 
  Country: None (occurrence: None)
  Receive Date: 20090318
  Receipt Date: 20081201
  Transmission Date: 20090719
  Serious: No
  Sender: FDA-Public Use
  Company Number: US-ASTRAZENECA-2008UW26684

PATIENT
  Age: 78 Year
  Sex: Female
  Weight: 75.7 kg

DRUGS (8)
  1. SYMBICORT [Suspect]
     Indication: CHRONIC OBSTRUCTIVE PULMONARY DISEASE
     Dosage: 160/4.5 MCG 120 INHALATIONS
     Route: 055
  2. BENAZEPRIL HYDROCHLORIDE [Concomitant]
  3. OMEPRAZOLE [Concomitant]
     Dosage: 40 MG
  4. LOVASTATIN [Concomitant]
  5. SYNTHROID [Concomitant]
  6. SERTRALINE [Concomitant]
  7. ALENDRONATE SODIUM [Concomitant]
  8. ASPIRIN [Concomitant]
     Dates: start: 20080901

REACTIONS (2)
  - COUGH [None]
  - DYSPNOEA [None]
